FAERS Safety Report 12347486 (Version 4)
Quarter: 2017Q3

REPORT INFORMATION
  Report Type: Report from Study
  Country: US (occurrence: US)
  Receive Date: 20160509
  Receipt Date: 20170818
  Transmission Date: 20171127
  Serious: Yes (Hospitalization, Other)
  Sender: FDA-Public Use
  Company Number: US-ACTELION-A-NJ2016-135646

PATIENT
  Age: 65 Year
  Sex: Female
  Weight: 55.78 kg

DRUGS (3)
  1. OPSUMIT [Suspect]
     Active Substance: MACITENTAN
     Indication: PULMONARY HYPERTENSION
     Dosage: 10 MG, QD
     Route: 048
     Dates: start: 20150423
  2. ELIQUIS [Concomitant]
     Active Substance: APIXABAN
  3. RIOCIGUAT [Concomitant]
     Active Substance: RIOCIGUAT

REACTIONS (5)
  - Lung disorder [Unknown]
  - Back pain [Unknown]
  - Colon cancer [Unknown]
  - Lung neoplasm malignant [Unknown]
  - Intestinal obstruction [Unknown]
